FAERS Safety Report 11240811 (Version 1)
Quarter: 2015Q3

REPORT INFORMATION
  Report Type: Spontaneous
  Country: FR (occurrence: FR)
  Receive Date: 20150706
  Receipt Date: 20150706
  Transmission Date: 20151125
  Serious: Yes (Life-Threatening, Hospitalization)
  Sender: FDA-Public Use
  Company Number: FR-PFIZER INC-2015217239

PATIENT
  Age: 70 Year
  Sex: Male

DRUGS (7)
  1. EUPRESSYL /00631801/ [Concomitant]
     Active Substance: URAPIDIL
  2. COZAAR [Concomitant]
     Active Substance: LOSARTAN POTASSIUM
  3. SUTENT [Suspect]
     Active Substance: SUNITINIB MALATE
     Dosage: 37.5 MG, 1X/DAY
     Route: 048
     Dates: end: 20150422
  4. LERCAN [Concomitant]
     Active Substance: LERCANIDIPINE
  5. PREVISCAN /00789001/ [Interacting]
     Active Substance: FLUINDIONE
     Dosage: 15 MG, 1X/DAY
     Route: 048
     Dates: end: 20150422
  6. TENORMIN [Concomitant]
     Active Substance: ATENOLOL
  7. LIPANTHYL [Concomitant]
     Active Substance: FENOFIBRATE

REACTIONS (4)
  - Anaemia [Recovered/Resolved]
  - International normalised ratio increased [Recovered/Resolved]
  - Retroperitoneal haemorrhage [Recovered/Resolved]
  - Drug interaction [Recovered/Resolved]

NARRATIVE: CASE EVENT DATE: 20150422
